FAERS Safety Report 11802627 (Version 1)
Quarter: 2015Q4

REPORT INFORMATION
  Report Type: Spontaneous
  Country: US (occurrence: None)
  Receive Date: 20151203
  Receipt Date: 20151203
  Transmission Date: 20160305
  Serious: Yes (Disabling)
  Sender: FDA-Public Use
  Company Number: None

PATIENT
  Age: 22 Year
  Sex: Female
  Weight: 60.33 kg

DRUGS (2)
  1. CIPROFLOXACIN. [Suspect]
     Active Substance: CIPROFLOXACIN
     Indication: URINARY TRACT INFECTION
     Dosage: 14 PILLS TWICE DAILY TAKEN BY MOUTH
     Route: 048
     Dates: start: 20150928, end: 20150928
  2. MIRENA [Concomitant]
     Active Substance: LEVONORGESTREL

REACTIONS (5)
  - Gait disturbance [None]
  - Myalgia [None]
  - Impaired work ability [None]
  - Arthralgia [None]
  - Burning sensation [None]

NARRATIVE: CASE EVENT DATE: 20150928
